FAERS Safety Report 24685798 (Version 1)
Quarter: 2024Q4

REPORT INFORMATION
  Report Type: Spontaneous
  Country: US (occurrence: None)
  Receive Date: 20241129
  Receipt Date: 20241129
  Transmission Date: 20250115
  Serious: Yes (Death)
  Sender: Public
  Company Number: None

PATIENT
  Sex: Female

DRUGS (4)
  1. AMBRISENTAN [Suspect]
     Active Substance: AMBRISENTAN
     Indication: Pulmonary hypertension
     Dosage: FREQUENCY : DAILY;?
     Route: 048
     Dates: start: 202408
  2. REMODULIN [Suspect]
     Active Substance: TREPROSTINIL
  3. PUMP REMUNITY STARTER KIT [Concomitant]
  4. REMUNITY CART W/FILL AID [Concomitant]

REACTIONS (7)
  - Pulmonary veno-occlusive disease [None]
  - Postoperative delirium [None]
  - Headache [None]
  - Nausea [None]
  - Decreased appetite [None]
  - Oxygen saturation decreased [None]
  - Hypotension [None]
